FAERS Safety Report 9553734 (Version 2)
Quarter: 2014Q1

REPORT INFORMATION
  Report Type: Spontaneous
  Country: CA (occurrence: CA)
  Receive Date: 20130925
  Receipt Date: 20140303
  Transmission Date: 20141002
  Serious: Yes (Death, Other)
  Sender: FDA-Public Use
  Company Number: CA-JNJFOC-20130913200

PATIENT
  Age: 40 Year
  Sex: Female

DRUGS (11)
  1. RISPERIDONE [Suspect]
     Indication: PRODUCT USED FOR UNKNOWN INDICATION
     Route: 065
  2. CLOZARIL [Suspect]
     Indication: SCHIZOAFFECTIVE DISORDER
     Route: 048
     Dates: start: 2001, end: 2005
  3. GABAPENTIN [Suspect]
     Indication: PRODUCT USED FOR UNKNOWN INDICATION
     Route: 065
  4. OLANZAPINE [Suspect]
     Indication: PRODUCT USED FOR UNKNOWN INDICATION
     Route: 065
  5. QUETIAPINE [Suspect]
     Indication: PRODUCT USED FOR UNKNOWN INDICATION
     Route: 065
  6. VALPROIC ACID [Suspect]
     Indication: PRODUCT USED FOR UNKNOWN INDICATION
     Dosage: 250 MG IN THE MORNING AND 1000 MG AT HOUR OF SLEEP
     Route: 065
  7. LIPITOR [Concomitant]
     Route: 065
  8. MIN-OVRAL [Concomitant]
     Route: 065
  9. NAPROXEN [Concomitant]
     Route: 065
  10. THYROXINE [Concomitant]
     Route: 065
  11. ATORVASTATIN [Concomitant]
     Route: 065

REACTIONS (14)
  - Pulmonary oedema [Fatal]
  - Pulmonary oedema [Unknown]
  - Angiopathy [Unknown]
  - Drug level increased [Unknown]
  - Faeces pale [Unknown]
  - Leukocytosis [Unknown]
  - Cough [Unknown]
  - Cough [Unknown]
  - Insomnia [Unknown]
  - Fatigue [Unknown]
  - Pallor [Unknown]
  - Dark circles under eyes [Unknown]
  - Apathy [Unknown]
  - Nasopharyngitis [Unknown]
